FAERS Safety Report 17542353 (Version 1)
Quarter: 2020Q1

REPORT INFORMATION
  Report Type: Report from Study
  Country: None (occurrence: AR)
  Receive Date: 20200313
  Receipt Date: 20200313
  Transmission Date: 20200409
  Serious: Yes (Disabling)
  Sender: FDA-Public Use
  Company Number: AR-ABBVIE-20K-007-3317944-00

PATIENT
  Age: 66 Year
  Sex: Female

DRUGS (1)
  1. HUMIRA [Suspect]
     Active Substance: ADALIMUMAB
     Indication: PSORIASIS
     Route: 058
     Dates: start: 20181031

REACTIONS (3)
  - Pain in extremity [Unknown]
  - Limb injury [Recovering/Resolving]
  - Pustule [Unknown]

NARRATIVE: CASE EVENT DATE: 20200115
